FAERS Safety Report 8487625-1 (Version None)
Quarter: 2012Q3

REPORT INFORMATION
  Report Type: 
  Country: None (occurrence: None)
  Receive Date: 20120705
  Receipt Date: 20120625
  Transmission Date: 20120928
  Serious: Yes (Death, Life-Threatening)
  Sender: FDA-Public Use
  Company Number: US-BAYER-2012-047624

PATIENT
  Age: 50 Year
  Sex: Female
  Weight: 91.61 kg

DRUGS (10)
  1. ASPIRIN [Concomitant]
     Dosage: 325 ? TAB [DAILY]
  2. LIPITOR [Concomitant]
     Dosage: 40 MG, ONE HALF TAB EVERY EVENING
  3. TRAZODONE HCL [Concomitant]
     Dosage: 50 MG, 1-3 TAB EVERY EVENING
  4. XANAX [Concomitant]
     Dosage: 0.5 MG, TID
  5. YASMIN [Suspect]
     Indication: DYSFUNCTIONAL UTERINE BLEEDING
     Dosage: UNK
     Dates: start: 20070326
  6. LEXAPRO [Concomitant]
     Dosage: 20 MG, 1.5 DAILY
  7. CYMBALTA [Concomitant]
     Dosage: 60 MG, DAILY
     Dates: start: 20061111, end: 20070528
  8. HYDROCHLOROTHIAZIDE [Concomitant]
     Dosage: 25 MG, 1/2 TAB DAILY
  9. NASACORT AQ [Concomitant]
     Dosage: 2 SPRAYS DAILY
  10. VALIUM [Concomitant]

REACTIONS (5)
  - PULMONARY EMBOLISM [None]
  - LOSS OF CONSCIOUSNESS [None]
  - CARDIOGENIC SHOCK [None]
  - ACUTE RESPIRATORY FAILURE [None]
  - PAIN [None]
